FAERS Safety Report 4530127-5 (Version None)
Quarter: 2004Q4

REPORT INFORMATION
  Report Type: 
  Country: None (occurrence: None)
  Receive Date: 20041217
  Receipt Date: 20041207
  Transmission Date: 20050328
  Serious: Yes (Other)
  Sender: FDA-Public Use
  Company Number: GB-JNJFOC-20041202477

PATIENT
  Age: 21 Year
  Sex: Male

DRUGS (4)
  1. HALDOL [Suspect]
     Indication: AGITATION
     Route: 042
  2. AMOXICILLIN [Concomitant]
  3. ERYTHROMYCIN [Concomitant]
  4. METOCLOPRAMIDE [Concomitant]
     Route: 042

REACTIONS (3)
  - ALANINE AMINOTRANSFERASE INCREASED [None]
  - BLOOD BILIRUBIN INCREASED [None]
  - CHOLESTASIS [None]
